FAERS Safety Report 20152320 (Version 1)
Quarter: 2021Q4

REPORT INFORMATION
  Report Type: Spontaneous
  Country: US (occurrence: None)
  Receive Date: 20211205
  Receipt Date: 20211205
  Transmission Date: 20220303
  Serious: Yes (Other)
  Sender: FDA-Public Use
  Company Number: None

PATIENT
  Age: 30 Year
  Sex: Female
  Weight: 96.75 kg

DRUGS (1)
  1. DOVE [Suspect]
     Active Substance: ALCOHOL
     Indication: Personal hygiene
     Dates: start: 20211101, end: 20211205

REACTIONS (1)
  - Application site pain [None]

NARRATIVE: CASE EVENT DATE: 20211101
